FAERS Safety Report 5733130-2 (Version None)
Quarter: 2008Q2

REPORT INFORMATION
  Report Type: 
  Country: None (occurrence: None)
  Receive Date: 20080509
  Receipt Date: 20080501
  Transmission Date: 20081010
  Serious: Yes (Death, Hospitalization, Other)
  Sender: FDA-Public Use
  Company Number: US-JNJFOC-20060705643

PATIENT
  Sex: Male
  Weight: 96.62 kg

DRUGS (7)
  1. REMICADE [Suspect]
     Route: 042
  2. REMICADE [Suspect]
     Route: 042
  3. REMICADE [Suspect]
     Indication: RHEUMATOID ARTHRITIS
     Route: 042
  4. PREDNISONE TAB [Concomitant]
  5. METHOTREXATE [Concomitant]
  6. HYDROXYCHLOROQUINE SULFATE [Concomitant]
  7. ETANERCEPT [Concomitant]

REACTIONS (5)
  - ABSCESS LIMB [None]
  - ARTHROPATHY [None]
  - ROTATOR CUFF SYNDROME [None]
  - SEPSIS [None]
  - STAPHYLOCOCCAL INFECTION [None]
